FAERS Safety Report 12944925 (Version 1)
Quarter: 2016Q4

REPORT INFORMATION
  Report Type: Spontaneous
  Country: CH (occurrence: CH)
  Receive Date: 20161116
  Receipt Date: 20161116
  Transmission Date: 20170207
  Serious: Yes (Life-Threatening, Hospitalization)
  Sender: FDA-Public Use
  Company Number: CH-ASTRAZENECA-2016SF12864

PATIENT
  Age: 25878 Day
  Sex: Female

DRUGS (8)
  1. SOMNIUM [Concomitant]
     Route: 048
  2. ACIDUM FOLICUM [Concomitant]
     Active Substance: FOLIC ACID
  3. CRESTOR [Suspect]
     Active Substance: ROSUVASTATIN CALCIUM
     Route: 048
     Dates: start: 20160608, end: 20160709
  4. DAFALGAN [Suspect]
     Active Substance: ACETAMINOPHEN
     Indication: PAIN
     Dosage: 1.0DF UNKNOWN
     Route: 048
     Dates: end: 20160709
  5. ANTABUS [Suspect]
     Active Substance: DISULFIRAM
     Indication: EX-ALCOHOLIC
     Route: 048
     Dates: start: 2014, end: 201607
  6. ONBREZ BREEZHALER [Concomitant]
     Active Substance: INDACATEROL
     Route: 055
  7. TEMESTA [Concomitant]
     Active Substance: LORAZEPAM
     Route: 048
  8. MOTILIUM [Concomitant]
     Active Substance: DOMPERIDONE
     Dosage: 1.0DF UNKNOWN
     Route: 048

REACTIONS (5)
  - Acute hepatic failure [Unknown]
  - Hypothermia [Unknown]
  - Syncope [Unknown]
  - Hepatic encephalopathy [Unknown]
  - Drug-induced liver injury [Recovering/Resolving]

NARRATIVE: CASE EVENT DATE: 20160609
